FAERS Safety Report 4924609-1 (Version None)
Quarter: 2006Q1

REPORT INFORMATION
  Report Type: 
  Country: None (occurrence: None)
  Receive Date: 20060222
  Receipt Date: 20060209
  Transmission Date: 20060701
  Serious: Yes (Hospitalization)
  Sender: FDA-Public Use
  Company Number: 2006021014

PATIENT
  Age: 66 Year
  Sex: Male
  Weight: 82 kg

DRUGS (3)
  1. SUTENT [Suspect]
     Indication: METASTATIC RENAL CELL CARCINOMA
     Dosage: 50 MG (50 MG, 1 IN 1 D),  ORAL
     Route: 048
     Dates: start: 20051230, end: 20060123
  2. TOREM (TORASEMIDE) [Concomitant]
  3. TRAMADOL HCL [Concomitant]

REACTIONS (2)
  - DRUG TOXICITY [None]
  - PLEURAL EFFUSION [None]
